FAERS Safety Report 10186246 (Version 2)
Quarter: 2014Q3

REPORT INFORMATION
  Report Type: Report from Study
  Country: US (occurrence: US)
  Receive Date: 20140521
  Receipt Date: 20140925
  Transmission Date: 20150326
  Serious: Yes (Other)
  Sender: FDA-Public Use
  Company Number: US-GLAXOSMITHKLINE-B0995373B

PATIENT
  Age: 81 Year
  Sex: Male
  Weight: 97.2 kg

DRUGS (12)
  1. ALEVE [Concomitant]
     Active Substance: NAPROXEN SODIUM
     Indication: ARTHRITIS
     Route: 048
     Dates: start: 2011
  2. PLAVIX [Concomitant]
     Active Substance: CLOPIDOGREL BISULFATE
     Indication: CARDIOVASCULAR EVENT PROPHYLAXIS
     Route: 048
     Dates: start: 20140405
  3. TAMSULOSIN [Concomitant]
     Active Substance: TAMSULOSIN
     Indication: BENIGN PROSTATIC HYPERPLASIA
     Dosage: .4MG PER DAY
     Route: 048
     Dates: start: 2009
  4. FLUTICASONE FUROATE [Suspect]
     Active Substance: FLUTICASONE FUROATE
     Indication: CHRONIC OBSTRUCTIVE PULMONARY DISEASE
     Dosage: 100MCG PER DAY
     Route: 055
     Dates: start: 20130312
  5. PRAVASTATIN [Concomitant]
     Active Substance: PRAVASTATIN\PRAVASTATIN SODIUM
     Indication: HYPERLIPIDAEMIA
     Dosage: 20MG PER DAY
     Route: 048
     Dates: start: 2011
  6. ASPIRIN. [Concomitant]
     Active Substance: ASPIRIN
     Indication: CARDIOVASCULAR EVENT PROPHYLAXIS
     Dosage: 81MG PER DAY
     Route: 048
     Dates: start: 20140405
  7. METOPROLOL [Concomitant]
     Active Substance: METOPROLOL
     Indication: HYPERTENSION
     Dosage: 125MG PER DAY
     Route: 048
     Dates: start: 201202
  8. VITAMIN D [Concomitant]
     Active Substance: CHOLECALCIFEROL
     Indication: SUPPLEMENTATION THERAPY
     Dosage: 1000IU PER DAY
     Route: 048
     Dates: start: 2011
  9. POTASSIUM CHLORIDE. [Concomitant]
     Active Substance: POTASSIUM CHLORIDE
     Indication: SUPPLEMENTATION THERAPY
     Dosage: 20MEQ PER DAY
     Route: 048
     Dates: start: 20140408
  10. LISINOPRIL. [Concomitant]
     Active Substance: LISINOPRIL
     Indication: HYPERTENSION
     Dosage: 5MG PER DAY
     Route: 048
     Dates: start: 2011
  11. FLUNISOLIDE. [Concomitant]
     Active Substance: FLUNISOLIDE
     Indication: HYPERSENSITIVITY
     Dates: start: 2011
  12. RESTASIS [Concomitant]
     Active Substance: CYCLOSPORINE
     Indication: DRY EYE
     Dosage: 1DROP TWICE PER DAY
     Route: 047
     Dates: start: 2009

REACTIONS (1)
  - Congestive cardiomyopathy [Recovered/Resolved]

NARRATIVE: CASE EVENT DATE: 20140514
